FAERS Safety Report 10518821 (Version 1)
Quarter: 2014Q4

REPORT INFORMATION
  Report Type: Spontaneous
  Country: US (occurrence: None)
  Receive Date: 20141014
  Receipt Date: 20141014
  Transmission Date: 20150528
  Serious: No
  Sender: FDA-Public Use
  Company Number: None

PATIENT
  Age: 62 Year
  Sex: Male
  Weight: 86.18 kg

DRUGS (3)
  1. ENOXAPARIN SODIUM (INJECTION) [Suspect]
     Active Substance: ENOXAPARIN SODIUM
     Indication: STEM CELL TRANSPLANT
     Dosage: 1 INJECTION?TWICE DAILY?GIVEN INTO/UNDER THE SKIN
     Dates: start: 20140808, end: 20141010
  2. ENOXAPARIN SODIUM (INJECTION) [Suspect]
     Active Substance: ENOXAPARIN SODIUM
     Indication: JUGULAR VEIN THROMBOSIS
     Dosage: 1 INJECTION?TWICE DAILY?GIVEN INTO/UNDER THE SKIN
     Dates: start: 20140808, end: 20141010
  3. ENOXAPARIN SODIUM (INJECTION) [Suspect]
     Active Substance: ENOXAPARIN SODIUM
     Indication: POST PROCEDURAL COMPLICATION
     Dosage: 1 INJECTION?TWICE DAILY?GIVEN INTO/UNDER THE SKIN
     Dates: start: 20140808, end: 20141010

REACTIONS (2)
  - Device malfunction [None]
  - Device difficult to use [None]

NARRATIVE: CASE EVENT DATE: 20141011
